FAERS Safety Report 18042436 (Version 1)
Quarter: 2020Q3

REPORT INFORMATION
  Report Type: Spontaneous
  Country: US (occurrence: US)
  Receive Date: 20200716
  Receipt Date: 20200716
  Transmission Date: 20201103
  Serious: Yes (Hospitalization)
  Sender: FDA-Public Use
  Company Number: None

PATIENT
  Age: 73 Year
  Sex: Male

DRUGS (2)
  1. LEVOFLOXACIN (LEVOFLOXACIN 500MG TAB) [Suspect]
     Active Substance: LEVOFLOXACIN
     Indication: CELLULITIS
     Route: 048
     Dates: start: 20180717, end: 20180719
  2. VALSARTAN (VALSARTAN 80MG TAB) [Suspect]
     Active Substance: VALSARTAN
     Route: 048
     Dates: start: 20150116

REACTIONS (8)
  - Tremor [None]
  - Hallucination [None]
  - Swollen tongue [None]
  - Encephalopathy [None]
  - Angioedema [None]
  - Dyspnoea [None]
  - Delirium [None]
  - Nausea [None]

NARRATIVE: CASE EVENT DATE: 20180719
